FAERS Safety Report 11837975 (Version 2)
Quarter: 2016Q1

REPORT INFORMATION
  Report Type: Spontaneous
  Country: US (occurrence: US)
  Receive Date: 20151215
  Receipt Date: 20160120
  Transmission Date: 20160525
  Serious: Yes (Hospitalization, Other)
  Sender: FDA-Public Use
  Company Number: US-GLAXOSMITHKLINE-A0843512A

PATIENT
  Age: 82 Year
  Sex: Female

DRUGS (10)
  1. PROAIR HFA [Concomitant]
     Active Substance: ALBUTEROL SULFATE
  2. CALCIUM [Concomitant]
     Active Substance: CALCIUM
  3. SPIRIVA [Concomitant]
     Active Substance: TIOTROPIUM BROMIDE MONOHYDRATE
  4. MUCINEX [Concomitant]
     Active Substance: GUAIFENESIN
  5. ASPIRIN. [Concomitant]
     Active Substance: ASPIRIN
  6. ALBUTEROL. [Concomitant]
     Active Substance: ALBUTEROL
  7. OXYGEN. [Concomitant]
     Active Substance: OXYGEN
     Dosage: UNK, CONTINUOUS
  8. ADVAIR HFA [Suspect]
     Active Substance: FLUTICASONE PROPIONATE\SALMETEROL XINAFOATE
     Indication: ASTHMA
     Dosage: 1 PUFF(S), BID
     Route: 055
     Dates: start: 200802
  9. SIMVASTATIN. [Concomitant]
     Active Substance: SIMVASTATIN
  10. ADVAIR HFA [Suspect]
     Active Substance: FLUTICASONE PROPIONATE\SALMETEROL XINAFOATE
     Indication: CHRONIC OBSTRUCTIVE PULMONARY DISEASE
     Dosage: 1 PUFF(S), BID
     Route: 055

REACTIONS (10)
  - Dysphonia [Not Recovered/Not Resolved]
  - Lip exfoliation [Unknown]
  - Lower respiratory tract congestion [Not Recovered/Not Resolved]
  - Muscle spasms [Unknown]
  - Product quality issue [Unknown]
  - Secretion discharge [Not Recovered/Not Resolved]
  - Dry mouth [Not Recovered/Not Resolved]
  - Dyspnoea [Not Recovered/Not Resolved]
  - Condition aggravated [Not Recovered/Not Resolved]
  - Oxygen supplementation [Unknown]

NARRATIVE: CASE EVENT DATE: 200804
